FAERS Safety Report 15751349 (Version 1)
Quarter: 2018Q4

REPORT INFORMATION
  Report Type: Spontaneous
  Country: AU (occurrence: AU)
  Receive Date: 20181221
  Receipt Date: 20181221
  Transmission Date: 20190205
  Serious: Yes (Other)
  Sender: FDA-Public Use
  Company Number: AU-IBSA PHARMA-TIR-2018-1284

PATIENT
  Age: 72 Year
  Sex: Female

DRUGS (1)
  1. LEVOTHYROXINE. [Suspect]
     Active Substance: LEVOTHYROXINE
     Indication: PRODUCT USED FOR UNKNOWN INDICATION
     Dosage: 12MG
     Route: 048

REACTIONS (4)
  - Thyrotoxic crisis [Unknown]
  - Overdose [Unknown]
  - Coma [Recovered/Resolved]
  - Somnolence [Recovered/Resolved]
